FAERS Safety Report 20519241 (Version 1)
Quarter: 2022Q1

REPORT INFORMATION
  Report Type: Spontaneous
  Country: US (occurrence: US)
  Receive Date: 20220225
  Receipt Date: 20220225
  Transmission Date: 20220423
  Serious: No
  Sender: FDA-Public Use
  Company Number: US-NOVOPROD-837351

PATIENT
  Age: 59 Year
  Sex: Female

DRUGS (1)
  1. VICTOZA [Suspect]
     Active Substance: LIRAGLUTIDE
     Indication: Product used for unknown indication
     Dosage: 1.8MG ONCE DAILY
     Route: 058

REACTIONS (4)
  - C-reactive protein increased [Not Recovered/Not Resolved]
  - Red blood cell sedimentation rate increased [Not Recovered/Not Resolved]
  - Pain [Not Recovered/Not Resolved]
  - Fibromyalgia [Not Recovered/Not Resolved]

NARRATIVE: CASE EVENT DATE: 20210101
